FAERS Safety Report 7634911-0 (Version None)
Quarter: 2011Q3

REPORT INFORMATION
  Report Type: 
  Country: None (occurrence: None)
  Receive Date: 20110726
  Receipt Date: 20110723
  Transmission Date: 20111222
  Serious: Yes (Hospitalization, Other)
  Sender: FDA-Public Use
  Company Number: US-BRISTOL-MYERS SQUIBB COMPANY-15243595

PATIENT
  Age: 59 Year
  Sex: Male

DRUGS (5)
  1. IPILIMUMAB [Suspect]
     Indication: MALIGNANT MELANOMA
     Route: 042
     Dates: start: 20100609, end: 20100811
  2. NEURONTIN [Concomitant]
     Dates: start: 20100721
  3. KEPPRA [Concomitant]
  4. OXYCODONE HCL [Concomitant]
  5. FINASTERIDE [Concomitant]
     Route: 048

REACTIONS (2)
  - INAPPROPRIATE ANTIDIURETIC HORMONE SECRETION [None]
  - ADRENAL INSUFFICIENCY [None]
